FAERS Safety Report 17670808 (Version 1)
Quarter: 2020Q2

REPORT INFORMATION
  Report Type: Spontaneous
  Country: FR (occurrence: FR)
  Receive Date: 20200415
  Receipt Date: 20200415
  Transmission Date: 20200713
  Serious: Yes (Life-Threatening)
  Sender: FDA-Public Use
  Company Number: FR-TEVA-2020-FR-1223035

PATIENT
  Age: 34 Year
  Sex: Female
  Weight: 58 kg

DRUGS (1)
  1. AMOXICILLINE [Suspect]
     Active Substance: AMOXICILLIN
     Indication: TONSILLITIS
     Dosage: 1 DOSAGE FORMS 1 TOTAL
     Route: 048
     Dates: start: 201811, end: 201811

REACTIONS (2)
  - Pharyngeal oedema [Recovered/Resolved]
  - Erythema [Recovered/Resolved]

NARRATIVE: CASE EVENT DATE: 201811
